FAERS Safety Report 24276708 (Version 1)
Quarter: 2024Q3

REPORT INFORMATION
  Report Type: Report from Study
  Country: GB (occurrence: GB)
  Receive Date: 20240903
  Receipt Date: 20240903
  Transmission Date: 20241016
  Serious: Yes (Other)
  Sender: SANDOZ
  Company Number: GB-002147023-NVSC2021GB239281

PATIENT
  Sex: Female

DRUGS (2)
  1. HYRIMOZ [Suspect]
     Active Substance: ADALIMUMAB-ADAZ
     Dosage: 40 MG, Q2W (STRENGTH: 40MG/0.4ML)
     Route: 058
  2. HYRIMOZ [Suspect]
     Active Substance: ADALIMUMAB-ADAZ
     Indication: Rheumatoid arthritis
     Dosage: 40 MG, Q2W (STRENGTH: 40MG/0.8ML)
     Route: 058
     Dates: start: 20210501

REACTIONS (3)
  - Cataract operation [Unknown]
  - COVID-19 [Not Recovered/Not Resolved]
  - Illness [Unknown]
